FAERS Safety Report 9283032 (Version 1)
Quarter: 2013Q2

REPORT INFORMATION
  Report Type: Report from Study
  Country: US (occurrence: US)
  Receive Date: 20130510
  Receipt Date: 20130510
  Transmission Date: 20140414
  Serious: Yes (Hospitalization)
  Sender: FDA-Public Use
  Company Number: US-ROCHE-1215902

PATIENT
  Age: 53 Year
  Sex: Male
  Weight: 54.19 kg

DRUGS (9)
  1. RIBAVIRIN [Suspect]
     Indication: HEPATITIS C
     Route: 048
     Dates: start: 20130114, end: 20130216
  2. RIBAVIRIN [Suspect]
     Route: 048
     Dates: start: 20130216
  3. PEG-INTERFERON ALFA 2A [Suspect]
     Indication: HEPATITIS C
     Route: 058
     Dates: start: 20130114
  4. PEG-INTERFERON ALFA 2A [Suspect]
     Dosage: DOSE REDUCED
     Route: 058
     Dates: start: 20130412
  5. TELAPREVIR [Suspect]
     Indication: HEPATITIS C
     Route: 048
     Dates: start: 20130114, end: 20130407
  6. MYCOPHENOLATE MOFETIL [Concomitant]
     Route: 065
     Dates: start: 20071224
  7. PROGRAF [Concomitant]
     Route: 065
     Dates: start: 20071224
  8. INSULIN [Concomitant]
     Route: 065
     Dates: start: 20080807
  9. ASPIRIN [Concomitant]
     Route: 065
     Dates: start: 20071230

REACTIONS (2)
  - Anaemia [Recovered/Resolved]
  - Proctalgia [Recovered/Resolved]
